FAERS Safety Report 5168665-7 (Version None)
Quarter: 2006Q4

REPORT INFORMATION
  Report Type: 
  Country: None (occurrence: None)
  Receive Date: 20061211
  Receipt Date: 20061201
  Transmission Date: 20070319
  Serious: Yes (Hospitalization)
  Sender: FDA-Public Use
  Company Number: US-JNJFOC-20061201176

PATIENT
  Sex: Female
  Weight: 80.74 kg

DRUGS (18)
  1. INFLIXIMAB [Suspect]
     Indication: RHEUMATOID ARTHRITIS
  2. BUSPAR [Concomitant]
  3. CALCIUM [Concomitant]
  4. CELEBREX [Concomitant]
  5. COZAAR [Concomitant]
  6. DARVOCET-N 100 [Concomitant]
  7. ESTRACE [Concomitant]
  8. FOLIC ACID [Concomitant]
     Dosage: DOSE 800 MCG DAILY
  9. IMURAN [Concomitant]
  10. PENTASA [Concomitant]
  11. PREVACID [Concomitant]
  12. SYNTHROID [Concomitant]
     Dosage: DOSE 137 MCG DAILY
  13. VERAPAMIL [Concomitant]
  14. ZOLOFT [Concomitant]
  15. ENTOCORT [Concomitant]
  16. VYTORIN [Concomitant]
  17. VITAMIN B-12 [Concomitant]
  18. VITAMIN E [Concomitant]

REACTIONS (4)
  - CONDITION AGGRAVATED [None]
  - CROHN'S DISEASE [None]
  - PNEUMONIA [None]
  - SEPSIS [None]
